FAERS Safety Report 9543048 (Version 1)
Quarter: 2013Q3

REPORT INFORMATION
  Report Type: Spontaneous
  Country: TR (occurrence: TR)
  Receive Date: 20130923
  Receipt Date: 20130923
  Transmission Date: 20140515
  Serious: Yes (Hospitalization)
  Sender: FDA-Public Use
  Company Number: PHHY2013TR103569

PATIENT
  Age: 16 Year
  Sex: Male

DRUGS (1)
  1. AMOXICILLIN, CLAVULANATE [Suspect]
     Indication: OROPHARYNGEAL PAIN
     Dosage: 1 G, UNK
     Route: 048

REACTIONS (4)
  - Kounis syndrome [Unknown]
  - Electrocardiogram ST segment elevation [Unknown]
  - Angina pectoris [Unknown]
  - Myocardial ischaemia [Unknown]
